FAERS Safety Report 7161420-8 (Version None)
Quarter: 2010Q4

REPORT INFORMATION
  Report Type: 
  Country: None (occurrence: None)
  Receive Date: 20101215
  Receipt Date: 20101213
  Transmission Date: 20110411
  Serious: Yes (Death, Other)
  Sender: FDA-Public Use
  Company Number: FR-PFIZER INC-2010169918

PATIENT
  Age: 71 Year
  Sex: Female

DRUGS (22)
  1. TAZOCILLINE [Suspect]
     Dosage: 4 G, 3X/DAY
     Route: 042
     Dates: start: 20100907, end: 20100913
  2. TAZOCILLINE [Suspect]
     Dosage: 4 G, 3X/DAY
     Route: 042
     Dates: start: 20100927, end: 20101011
  3. TAZOCILLINE [Suspect]
     Dosage: 4 G, 3X/DAY
     Route: 042
     Dates: start: 20101019, end: 20101025
  4. OMEPRAZOLE [Concomitant]
     Dosage: 20 MG, 1X/DAY
  5. RAMIPRIL [Concomitant]
  6. BISOPROLOL [Concomitant]
  7. TAHOR [Concomitant]
  8. FUROSEMIDE [Concomitant]
  9. LEVOTHYROX [Concomitant]
  10. FRAXODI [Concomitant]
     Dosage: UNK
     Dates: start: 20100930
  11. ATROVENT [Concomitant]
     Dosage: UNK
     Dates: start: 20100930
  12. DIGOXINE [Concomitant]
     Dosage: UNK
     Dates: start: 20100930
  13. BRICANYL [Concomitant]
  14. CIFLOX [Concomitant]
     Dosage: UNK
     Dates: start: 20101006
  15. PULMICORT [Concomitant]
     Dosage: UNK
     Dates: start: 20100930
  16. PLAVIX [Concomitant]
  17. CORDARONE [Concomitant]
  18. ATARAX [Concomitant]
  19. SERETIDE [Concomitant]
     Dosage: UNK
     Dates: start: 20101011
  20. SPIRIVA [Concomitant]
     Dosage: UNK
     Dates: start: 20101011
  21. SOLUPRED [Concomitant]
  22. SALBUTAMOL [Concomitant]

REACTIONS (3)
  - ANAEMIA [None]
  - NEUTROPENIA [None]
  - THROMBOCYTOPENIA [None]
